FAERS Safety Report 8852983 (Version 1)
Quarter: 2012Q4

REPORT INFORMATION
  Report Type: 
  Country: TN (occurrence: TN)
  Receive Date: 20121022
  Receipt Date: 20121022
  Transmission Date: 20130627
  Serious: Yes (Other)
  Sender: FDA-Public Use
  Company Number: PHHY2012TN092138

PATIENT
  Age: 67 Year
  Sex: Male

DRUGS (4)
  1. AMIODARONE [Suspect]
     Indication: ARRHYTHMIA SUPRAVENTRICULAR
     Dosage: 200 mg, QD; 5 days a week
     Dates: start: 2003, end: 20111020
  2. RAMIPRIL [Concomitant]
     Indication: HYPERTENSION
     Dosage: 5 mg, QD
     Dates: start: 2007
  3. ALFUZOSIN [Concomitant]
     Indication: PROSTATIC ADENOMA
     Dosage: 10 mg, QD
     Dates: start: 2010
  4. ACENOCOUMAROL [Concomitant]
     Indication: ARRHYTHMIA SUPRAVENTRICULAR
     Dosage: 2 mg, QD
     Dates: start: 2003

REACTIONS (4)
  - Non-alcoholic steatohepatitis [Recovering/Resolving]
  - Hepatic steatosis [Recovering/Resolving]
  - Liver function test abnormal [Recovering/Resolving]
  - Transaminases increased [Recovering/Resolving]
